FAERS Safety Report 10235849 (Version 3)
Quarter: 2014Q2

REPORT INFORMATION
  Report Type: Spontaneous
  Country: CH (occurrence: CH)
  Receive Date: 20140613
  Receipt Date: 20140619
  Transmission Date: 20141212
  Serious: Yes (Hospitalization, Other)
  Sender: FDA-Public Use
  Company Number: CH-PFIZER INC-2014013545

PATIENT
  Age: 66 Year
  Sex: Female

DRUGS (3)
  1. CAMPTO [Suspect]
     Indication: PANCREATIC CARCINOMA METASTATIC
     Dosage: 200 MG, CYCLIC (EVERY TWO WEEKS)
  2. 5-FU [Suspect]
     Indication: PANCREATIC CARCINOMA METASTATIC
     Dosage: UNK
  3. ELOXATIN [Suspect]
     Indication: PANCREATIC CARCINOMA METASTATIC
     Dosage: UNK

REACTIONS (10)
  - Renal failure [Unknown]
  - Polyneuropathy [Unknown]
  - Drug intolerance [Unknown]
  - Dermal cyst [Unknown]
  - Disease progression [Unknown]
  - Pancreatic carcinoma metastatic [Unknown]
  - Off label use [Unknown]
  - Diarrhoea [Unknown]
  - Vomiting [Unknown]
  - Haematotoxicity [Unknown]
